FAERS Safety Report 7611488-7 (Version None)
Quarter: 2011Q3

REPORT INFORMATION
  Report Type: 
  Country: None (occurrence: None)
  Receive Date: 20110706
  Receipt Date: 20110621
  Transmission Date: 20111222
  Serious: Yes (Other)
  Sender: FDA-Public Use
  Company Number: 2011028763

PATIENT
  Sex: Female
  Weight: 50.8029 kg

DRUGS (4)
  1. MAXALT (RIZATRIPTAN) [Concomitant]
  2. XANAX [Concomitant]
  3. HIZENTRA [Suspect]
     Indication: IMMUNODEFICIENCY COMMON VARIABLE
     Dosage: 8 G 1X/WEEK. 4 GM 20 ML VIAL; 40 ML IN 1 HR VIA 3SQ SITES SUBCUTANEOUS, 4 GM 20 MI  VIAL SUBCUTANEOU
     Route: 058
     Dates: start: 20100825
  4. HIZENTRA [Suspect]

REACTIONS (1)
  - URINARY TRACT INFECTION [None]
